FAERS Safety Report 6194202-4 (Version None)
Quarter: 2009Q2

REPORT INFORMATION
  Report Type: 
  Country: None (occurrence: None)
  Receive Date: 20090518
  Receipt Date: 20090514
  Transmission Date: 20091009
  Serious: Yes (Other)
  Sender: FDA-Public Use
  Company Number: US-B.I. PHARMACEUTICALS,INC./RIDGEFIELD-2009-BP-05267BP

PATIENT
  Age: 55 Year
  Sex: Male

DRUGS (3)
  1. FLOMAX [Suspect]
     Route: 048
     Dates: start: 20090101
  2. TERAZOSIN HCL [Suspect]
  3. VIAGRA [Suspect]

REACTIONS (2)
  - DRUG INTERACTION [None]
  - LOSS OF CONSCIOUSNESS [None]
